FAERS Safety Report 23683347 (Version 1)
Quarter: 2024Q1

REPORT INFORMATION
  Report Type: Spontaneous
  Country: JP (occurrence: JP)
  Receive Date: 20240328
  Receipt Date: 20240328
  Transmission Date: 20240410
  Serious: Yes (Death, Other)
  Sender: FDA-Public Use
  Company Number: JP-AMGEN-JPNSP2024062044

PATIENT

DRUGS (1)
  1. EVENITY [Suspect]
     Active Substance: ROMOSOZUMAB-AQQG
     Indication: Product used for unknown indication
     Dosage: 210 MILLIGRAM
     Route: 058

REACTIONS (9)
  - Death [Fatal]
  - Meningitis [Unknown]
  - Cerebral infarction [Unknown]
  - Ileus [Unknown]
  - Abulia [Unknown]
  - Pyrexia [Unknown]
  - Injection site pain [Unknown]
  - COVID-19 [Unknown]
  - Fracture [Unknown]
